FAERS Safety Report 24133458 (Version 1)
Quarter: 2024Q3

REPORT INFORMATION
  Report Type: Spontaneous
  Country: US (occurrence: None)
  Receive Date: 20240724
  Receipt Date: 20240724
  Transmission Date: 20241017
  Serious: Yes (Death, Hospitalization)
  Sender: Public
  Company Number: None

PATIENT
  Age: 67 Year
  Sex: Male
  Weight: 87.4 kg

DRUGS (1)
  1. TEMOZOLOMIDE [Suspect]
     Active Substance: TEMOZOLOMIDE
     Dates: end: 20240624

REACTIONS (4)
  - Muscular weakness [None]
  - Confusional state [None]
  - Behaviour disorder [None]
  - Ischaemic cerebral infarction [None]

NARRATIVE: CASE EVENT DATE: 20240624
